FAERS Safety Report 5211161-9 (Version None)
Quarter: 2006Q4

REPORT INFORMATION
  Report Type: 
  Country: None (occurrence: None)
  Receive Date: 20061114
  Receipt Date: 20060822
  Transmission Date: 20070319
  Serious: No
  Sender: FDA-Public Use
  Company Number: S06-USA-03427-01

PATIENT
  Age: 46 Year
  Sex: Female

DRUGS (5)
  1. NAMENDA [Suspect]
     Indication: TRIGEMINAL NEURALGIA
     Dosage: 15 MG QD PO
     Route: 048
     Dates: start: 20060816
  2. NAMENDA [Suspect]
     Indication: TRIGEMINAL NEURALGIA
     Dosage: 5 MG QD PO
     Route: 048
     Dates: start: 20060802, end: 20060808
  3. NAMENDA [Suspect]
     Indication: TRIGEMINAL NEURALGIA
     Dosage: 5 MG BID PO
     Route: 048
     Dates: start: 20060809, end: 20060815
  4. NEURONTIN [Concomitant]
  5. CELEBREX [Concomitant]

REACTIONS (1)
  - HYPOAESTHESIA FACIAL [None]
